FAERS Safety Report 8915881 (Version 1)
Quarter: 2012Q4

REPORT INFORMATION
  Report Type: 
  Country: SE (occurrence: SE)
  Receive Date: 20121119
  Receipt Date: 20121119
  Transmission Date: 20130627
  Serious: Yes (Hospitalization, Other)
  Sender: FDA-Public Use
  Company Number: SE-PFIZER INC-2012284776

PATIENT
  Age: 45 Year
  Sex: Female
  Weight: 65 kg

DRUGS (4)
  1. GENOTROPIN [Suspect]
     Dosage: 0.7 mg, 1x/day, 7 injections/week
     Route: 058
     Dates: start: 20090101
  2. DESMOPRESSIN [Concomitant]
     Indication: ADH DECREASED
     Dosage: UNK
     Dates: start: 19930101
  3. IMIGRAN [Concomitant]
     Indication: MIGRAINE
     Dosage: UNK
     Dates: start: 19981220
  4. LEVOTHYROXINE [Concomitant]
     Indication: HYPOTHYROIDISM
     Dosage: UNK
     Dates: start: 20090101

REACTIONS (2)
  - Loss of consciousness [Unknown]
  - Hypertension [Unknown]
